FAERS Safety Report 6036216-0 (Version None)
Quarter: 2009Q1

REPORT INFORMATION
  Report Type: 
  Country: None (occurrence: None)
  Receive Date: 20090113
  Receipt Date: 20090107
  Transmission Date: 20090719
  Serious: No
  Sender: FDA-Public Use
  Company Number: US-B.I. PHARMACEUTICALS,INC./RIDGEFIELD-2009-BP-00209BP

PATIENT
  Sex: Female

DRUGS (6)
  1. SPIRIVA [Suspect]
     Indication: IDIOPATHIC PULMONARY FIBROSIS
     Dosage: 18MCG
     Route: 055
     Dates: start: 20080701
  2. SPIRIVA [Suspect]
     Indication: EMPHYSEMA
  3. FELODIPINE [Concomitant]
     Indication: HEADACHE
  4. MORPHINE [Concomitant]
  5. PROTONIX [Concomitant]
     Indication: GASTROOESOPHAGEAL REFLUX DISEASE
  6. PREDNISONE TAB [Concomitant]

REACTIONS (6)
  - BRONCHITIS [None]
  - COUGH [None]
  - HERNIA [None]
  - LARYNGITIS [None]
  - SINUSITIS [None]
  - WHEEZING [None]
